FAERS Safety Report 19777375 (Version 1)
Quarter: 2021Q3

REPORT INFORMATION
  Report Type: Spontaneous
  Country: US (occurrence: US)
  Receive Date: 20210830
  Receipt Date: 20210830
  Transmission Date: 20211014
  Serious: No
  Sender: FDA-Public Use
  Company Number: None

PATIENT
  Age: 66 Year
  Sex: Male
  Weight: 136 kg

DRUGS (1)
  1. BENZTROPINE (BENZTROPINE MESYLATE 0.5MG TAB) [Suspect]
     Active Substance: BENZTROPINE MESYLATE
     Indication: TREMOR
     Route: 048
     Dates: start: 20201110, end: 20201207

REACTIONS (3)
  - Fall [None]
  - Gait disturbance [None]
  - Tremor [None]

NARRATIVE: CASE EVENT DATE: 20201207
